FAERS Safety Report 4643358-0 (Version None)
Quarter: 2005Q2

REPORT INFORMATION
  Report Type: 
  Country: None (occurrence: None)
  Receive Date: 20050422
  Receipt Date: 20050413
  Transmission Date: 20051028
  Serious: Yes (Hospitalization, Other)
  Sender: FDA-Public Use
  Company Number: 2005-03-2153

PATIENT
  Age: 64 Year
  Sex: Female
  Weight: 68.9467 kg

DRUGS (1)
  1. PEG-INTRON [Suspect]
     Indication: POLYCYTHAEMIA VERA
     Dosage: 80 MCG QW SUBCUTANEOUS
     Route: 058
     Dates: start: 20040326

REACTIONS (5)
  - CIRCUMSTANCE OR INFORMATION CAPABLE OF LEADING TO MEDICATION ERROR [None]
  - DYSPEPSIA [None]
  - MEDICATION ERROR [None]
  - PORTAL VEIN THROMBOSIS [None]
  - SPLENOMEGALY [None]
